FAERS Safety Report 7052558-4 (Version None)
Quarter: 2010Q4

REPORT INFORMATION
  Report Type: 
  Country: None (occurrence: None)
  Receive Date: 20101019
  Receipt Date: 20101007
  Transmission Date: 20110411
  Serious: Yes (Other)
  Sender: FDA-Public Use
  Company Number: US-PFIZER INC-2010128448

PATIENT
  Sex: Female
  Weight: 61.224 kg

DRUGS (3)
  1. NEURONTIN [Suspect]
     Indication: ROAD TRAFFIC ACCIDENT
     Dosage: 900 MG, 3X/DAY
     Route: 048
  2. NEURONTIN [Suspect]
     Dosage: 600 MG, 3X/DAY
     Route: 048
     Dates: start: 20101004
  3. LYRICA [Suspect]
     Indication: ROAD TRAFFIC ACCIDENT
     Dosage: 75 MG, 2X/DAY
     Route: 048
     Dates: start: 20101004, end: 20101006

REACTIONS (5)
  - DYSKINESIA [None]
  - EYE SWELLING [None]
  - FALL [None]
  - GAIT DISTURBANCE [None]
  - OEDEMA PERIPHERAL [None]
